FAERS Safety Report 23692554 (Version 1)
Quarter: 2024Q1

REPORT INFORMATION
  Report Type: Spontaneous
  Country: US (occurrence: None)
  Receive Date: 20240330
  Receipt Date: 20240330
  Transmission Date: 20240409
  Serious: Yes (Other)
  Sender: FDA-Public Use
  Company Number: None

PATIENT
  Age: 27 Year
  Sex: Female
  Weight: 60.75 kg

DRUGS (4)
  1. DROSPIRENONE\ETHINYL ESTRADIOL [Suspect]
     Active Substance: DROSPIRENONE\ETHINYL ESTRADIOL
     Indication: Dysmenorrhoea
     Dosage: 1 TABLET DAILY ORA;
     Route: 048
     Dates: start: 20230730, end: 20240211
  2. LEVONOR-E ESTARD [Concomitant]
  3. FERROUS SULFATE [Concomitant]
     Active Substance: FERROUS SULFATE
  4. VITAMIN B [Concomitant]
     Active Substance: VITAMIN B

REACTIONS (13)
  - Rash [None]
  - Hormone level abnormal [None]
  - Anxiety [None]
  - Product substitution issue [None]
  - Fatigue [None]
  - Depression [None]
  - Emotional disorder [None]
  - Migraine [None]
  - Nausea [None]
  - Visual impairment [None]
  - Impaired healing [None]
  - Vaginal odour [None]
  - Behaviour disorder [None]

NARRATIVE: CASE EVENT DATE: 20240210
